FAERS Safety Report 6916797-2 (Version None)
Quarter: 2010Q3

REPORT INFORMATION
  Report Type: 
  Country: None (occurrence: None)
  Receive Date: 20100810
  Receipt Date: 20100803
  Transmission Date: 20110219
  Serious: Yes (Death)
  Sender: FDA-Public Use
  Company Number: AU-CELGENEUS-008-50794-10060287

PATIENT
  Sex: Male
  Weight: 98 kg

DRUGS (12)
  1. VIDAZA [Suspect]
     Indication: MYELODYSPLASTIC SYNDROME
     Route: 050
     Dates: start: 20090113, end: 20090413
  2. VIDAZA [Suspect]
     Route: 050
     Dates: start: 20090813, end: 20090814
  3. BLOOD TRANSFUSION [Concomitant]
     Indication: PRODUCT USED FOR UNKNOWN INDICATION
     Route: 051
     Dates: start: 20090922, end: 20090922
  4. SOMAC [Concomitant]
     Indication: ULCER
     Route: 048
     Dates: start: 20091208
  5. THIAMINE HCL [Concomitant]
     Indication: VITAMIN SUPPLEMENTATION
     Route: 065
     Dates: start: 20091208
  6. PERINDOPRIL ERBUMINE [Concomitant]
     Indication: HYPERTENSION
     Route: 065
     Dates: start: 20091208
  7. ALLOHEXAL [Concomitant]
     Indication: PROPHYLAXIS
     Route: 065
     Dates: start: 20091208
  8. BICOR [Concomitant]
     Indication: PROPHYLAXIS
     Route: 065
     Dates: start: 20091208
  9. BICOR [Concomitant]
     Route: 048
     Dates: start: 20091226
  10. HIPNEX [Concomitant]
     Route: 065
     Dates: start: 20091208, end: 20100104
  11. CENTRUM [Concomitant]
     Indication: SUPPLEMENTATION THERAPY
     Route: 065
     Dates: start: 20091208
  12. AUGMENTIN DUO FORTE [Concomitant]
     Indication: PRODUCT USED FOR UNKNOWN INDICATION
     Route: 065
     Dates: start: 20091208, end: 20091212

REACTIONS (5)
  - CARDIAC FAILURE CONGESTIVE [None]
  - DISEASE PROGRESSION [None]
  - PANCYTOPENIA [None]
  - PNEUMONIA [None]
  - SEPSIS [None]
